FAERS Safety Report 7537455-X (Version None)
Quarter: 2011Q2

REPORT INFORMATION
  Report Type: 
  Country: None (occurrence: None)
  Receive Date: 20110608
  Receipt Date: 20110608
  Transmission Date: 20111010
  Serious: No
  Sender: FDA-Public Use
  Company Number: None

PATIENT
  Age: 42 Year
  Sex: Female
  Weight: 63.5036 kg

DRUGS (2)
  1. YEAST INFECTION (HOMEOPATHIC) NATURE'S CURE [Suspect]
     Dosage: 1 TABLET 1 DOSAGE
  2. MICONAZOLE NITRATE [Suspect]
     Indication: FUNGAL INFECTION
     Dosage: 200MG SUPPOSITORY 1 DOSAGE VAG
     Route: 067
     Dates: start: 20110520, end: 20110520

REACTIONS (2)
  - PRODUCT LABEL ISSUE [None]
  - EXPIRED DRUG ADMINISTERED [None]
